APPROVED DRUG PRODUCT: RISPERDAL
Active Ingredient: RISPERIDONE
Strength: 2MG
Dosage Form/Route: TABLET;ORAL
Application: N020272 | Product #002 | TE Code: AB
Applicant: JANSSEN PHARMACEUTICALS INC
Approved: Dec 29, 1993 | RLD: Yes | RS: No | Type: RX